FAERS Safety Report 23964584 (Version 2)
Quarter: 2024Q3

REPORT INFORMATION
  Report Type: Report from Study
  Country: US (occurrence: US)
  Receive Date: 20240612
  Receipt Date: 20240713
  Transmission Date: 20241017
  Serious: Yes (Other)
  Sender: ABBVIE
  Company Number: US-ABBVIE-5795125

PATIENT
  Age: 39 Year
  Sex: Male

DRUGS (1)
  1. HUMIRA [Suspect]
     Active Substance: ADALIMUMAB
     Indication: Psoriatic arthropathy
     Dosage: FORM STRENGTH: 40 MILLIGRAM?CITRATE FREE
     Route: 058
     Dates: start: 20170101

REACTIONS (4)
  - Excessive skin [Recovered/Resolved]
  - Stress [Not Recovered/Not Resolved]
  - Eyelid operation [Recovering/Resolving]
  - Psoriatic arthropathy [Unknown]

NARRATIVE: CASE EVENT DATE: 20240501
